FAERS Safety Report 7662006-9 (Version None)
Quarter: 2011Q3

REPORT INFORMATION
  Report Type: 
  Country: None (occurrence: None)
  Receive Date: 20110805
  Receipt Date: 20101207
  Transmission Date: 20111222
  Serious: No
  Sender: FDA-Public Use
  Company Number: US-ABBOTT-10P-163-0690123-00

PATIENT
  Sex: Male
  Weight: 83.99 kg

DRUGS (7)
  1. HYDROCORT [Concomitant]
     Indication: PRODUCT USED FOR UNKNOWN INDICATION
     Route: 048
  2. ASPIRIN [Concomitant]
     Indication: PRODUCT USED FOR UNKNOWN INDICATION
     Route: 048
  3. AMLODIPINE [Concomitant]
     Indication: PRODUCT USED FOR UNKNOWN INDICATION
     Route: 048
  4. IBUPROFEN [Concomitant]
     Indication: PRODUCT USED FOR UNKNOWN INDICATION
     Route: 048
  5. SIMVASTATIN [Concomitant]
     Indication: PRODUCT USED FOR UNKNOWN INDICATION
     Route: 048
  6. NIASPAN [Suspect]
     Indication: DYSLIPIDAEMIA
     Dosage: 1000MG IN THE EVENING
     Route: 048
     Dates: start: 20101001
  7. NIASPAN [Suspect]
     Indication: THROMBOSIS
     Dosage: 500MG IN THE EVENING
     Route: 048
     Dates: start: 20100915, end: 20101001

REACTIONS (4)
  - CHILLS [None]
  - FLUSHING [None]
  - FEELING HOT [None]
  - PRURITUS [None]
